FAERS Safety Report 17525850 (Version 1)
Quarter: 2020Q1

REPORT INFORMATION
  Report Type: Spontaneous
  Country: US (occurrence: US)
  Receive Date: 20200303
  Receipt Date: 20200303
  Transmission Date: 20200409
  Serious: Yes (Hospitalization)
  Sender: FDA-Public Use
  Company Number: None

PATIENT
  Age: 76 Year
  Sex: Female

DRUGS (6)
  1. ENBREL [Suspect]
     Active Substance: ETANERCEPT
     Indication: RHEUMATOID ARTHRITIS
     Route: 058
     Dates: start: 20140405
  2. CLARINEX [Concomitant]
     Active Substance: DESLORATADINE
  3. CALCIUM [Concomitant]
     Active Substance: CALCIUM
  4. BONIVA [Concomitant]
     Active Substance: IBANDRONATE SODIUM
  5. DIOVAN [Concomitant]
     Active Substance: VALSARTAN
  6. EVOXAC [Concomitant]
     Active Substance: CEVIMELINE HYDROCHLORIDE

REACTIONS (2)
  - Fall [None]
  - Limb injury [None]
